FAERS Safety Report 19270979 (Version 1)
Quarter: 2021Q2

REPORT INFORMATION
  Report Type: Spontaneous
  Country: CA (occurrence: CA)
  Receive Date: 20210518
  Receipt Date: 20210518
  Transmission Date: 20210717
  Serious: Yes (Other)
  Sender: FDA-Public Use
  Company Number: CA-SAMSUNG BIOEPIS-SB-2021-11739

PATIENT
  Age: 53 Year
  Sex: Female
  Weight: 86 kg

DRUGS (1)
  1. INFLIXIMAB [Suspect]
     Active Substance: INFLIXIMAB
     Indication: COLITIS ULCERATIVE
     Route: 042

REACTIONS (19)
  - Abdominal pain [Unknown]
  - Blood pressure diastolic increased [Unknown]
  - Blood pressure increased [Unknown]
  - Flank pain [Unknown]
  - Decreased appetite [Unknown]
  - Dizziness [Unknown]
  - Illness [Unknown]
  - Emotional disorder [Unknown]
  - Condition aggravated [Unknown]
  - Depressed mood [Unknown]
  - Fatigue [Unknown]
  - Intentional product use issue [Unknown]
  - Back pain [Unknown]
  - Nausea [Unknown]
  - Pain [Unknown]
  - Off label use [Unknown]
  - Disturbance in attention [Unknown]
  - Feeling abnormal [Unknown]
  - Asthenia [Unknown]
